FAERS Safety Report 7926860-5 (Version None)
Quarter: 2011Q4

REPORT INFORMATION
  Report Type: 
  Country: None (occurrence: None)
  Receive Date: 20111118
  Receipt Date: 20111118
  Transmission Date: 20120403
  Serious: Yes (Other)
  Sender: FDA-Public Use
  Company Number: JP-PFIZER INC-2011271225

PATIENT
  Age: 50 Year
  Sex: Male

DRUGS (3)
  1. VARENICLINE TARTRATE [Suspect]
     Indication: SMOKING CESSATION THERAPY
     Dosage: UNK
     Route: 048
  2. PROSTAGLANDIN [Concomitant]
     Dosage: UNK
  3. SANPILO [Concomitant]
     Dosage: UNK
     Route: 047

REACTIONS (1)
  - VISUAL IMPAIRMENT [None]
